FAERS Safety Report 24575037 (Version 2)
Quarter: 2024Q4

REPORT INFORMATION
  Report Type: Report from Study
  Country: US (occurrence: US)
  Receive Date: 20241104
  Receipt Date: 20241114
  Transmission Date: 20250114
  Serious: Yes (Hospitalization)
  Sender: ABBVIE
  Company Number: US-ABBVIE-5985353

PATIENT
  Age: 23 Year
  Sex: Female
  Weight: 59 kg

DRUGS (2)
  1. RINVOQ [Suspect]
     Active Substance: UPADACITINIB
     Indication: Crohn^s disease
     Dosage: FORM STRENGTH 45 MILLIGRAM
     Route: 048
     Dates: start: 20241017, end: 20241030
  2. ELIQUIS [Concomitant]
     Active Substance: APIXABAN
     Indication: Thrombosis

REACTIONS (3)
  - Abdominal pain upper [Recovering/Resolving]
  - Colonic fistula [Recovering/Resolving]
  - Anaemia [Recovering/Resolving]

NARRATIVE: CASE EVENT DATE: 20241017
